FAERS Safety Report 20168817 (Version 2)
Quarter: 2021Q4

REPORT INFORMATION
  Report Type: Spontaneous
  Country: GB (occurrence: GB)
  Receive Date: 20211210
  Receipt Date: 20211221
  Transmission Date: 20220303
  Serious: Yes (Disabling, Other)
  Sender: FDA-Public Use
  Company Number: None

PATIENT
  Age: 84 Year
  Sex: Female
  Weight: 60.7 kg

DRUGS (20)
  1. MONTELUKAST SODIUM [Suspect]
     Active Substance: MONTELUKAST SODIUM
     Indication: Asthma
     Dosage: 1 TABLET ONCE A DAY, TRIAL OVER 3M
     Route: 048
     Dates: start: 20211101, end: 20211118
  2. AMITRIPTYLINE [Concomitant]
     Active Substance: AMITRIPTYLINE
     Dosage: NIGHTLY
     Dates: start: 20211119
  3. ATORVASTATIN [Concomitant]
     Active Substance: ATORVASTATIN
     Dosage: NIGHTLY
     Dates: start: 20210927
  4. FLUTICASONE FUROATE [Concomitant]
     Active Substance: FLUTICASONE FUROATE
     Dosage: 1 SPRAY INTO EACH NOSTRIL ONCE DAILY
     Route: 045
     Dates: start: 20210923
  5. BENZYDAMINE [Concomitant]
     Active Substance: BENZYDAMINE
     Dosage: GARGLE 15ML EVERY 1.5 TO 3 HOURS, FORMULATION: GARGLE
     Dates: start: 20211022
  6. BISOPROLOL [Concomitant]
     Active Substance: BISOPROLOL
     Dosage: 1 DAILY
     Dates: start: 20210927
  7. BUTYLSCOPOLAMINE BROMIDE [Concomitant]
     Active Substance: BUTYLSCOPOLAMINE BROMIDE
     Dosage: UP TO THREE TIMES A DAY
     Dates: start: 20211022
  8. FLUCLOXACILLIN [Concomitant]
     Active Substance: FLUCLOXACILLIN
     Dosage: 1 CAPSULE FOUR TIMES A DAY
     Dates: start: 20211126
  9. HYDROXOCOBALAMIN [Concomitant]
     Active Substance: HYDROXOCOBALAMIN
     Dosage: 1MG/1ML IMMEDIATELY
     Dates: start: 20211005
  10. LEVOTHYROXINE [Concomitant]
     Active Substance: LEVOTHYROXINE
     Dosage: 1 DAILY
     Dates: start: 20210927, end: 20211119
  11. LOPERAMIDE [Concomitant]
     Active Substance: LOPERAMIDE
     Dosage: 1 UP TO FOUR TIMES A DAY
     Dates: start: 20210927, end: 20211130
  12. CALCIUM CARBONATE\SODIUM ALGINATE\SODIUM BICARBONATE [Concomitant]
     Active Substance: CALCIUM CARBONATE\SODIUM ALGINATE\SODIUM BICARBONATE
     Dosage: 10ML AFTER MEALS AND AT BEDTIME
     Dates: start: 20211028
  13. QUETIAPINE [Concomitant]
     Active Substance: QUETIAPINE
     Dosage: 1 BD
     Dates: start: 20210927
  14. VENTOLIN [Concomitant]
     Active Substance: ALBUTEROL SULFATE
     Dosage: 2 PUFFS BD + PRN
     Dates: start: 20211028
  15. WARFARIN [Concomitant]
     Active Substance: WARFARIN
     Dosage: AS DIRECTED
     Dates: start: 20210923, end: 20211119
  16. MIRTAZAPINE [Concomitant]
     Active Substance: MIRTAZAPINE
     Dosage: 1 TABLET ONCE A DAY AT NIGHT
     Route: 048
     Dates: start: 20210927
  17. EVACAL D3 [Concomitant]
     Dosage: 1 DOSAGE FORM, QD
     Dates: start: 20211022
  18. LOSARTAN POTASSIUM [Concomitant]
     Active Substance: LOSARTAN POTASSIUM
     Dosage: TRIAL OVER 2-3M
  19. ALBUTEROL [Concomitant]
     Active Substance: ALBUTEROL
     Dosage: REPORTED AS SALBUTAMOL BASE
  20. FLUTICASONE PROPIONATE\SALMETEROL XINAFOATE [Concomitant]
     Active Substance: FLUTICASONE PROPIONATE\SALMETEROL XINAFOATE
     Dosage: UNK

REACTIONS (6)
  - Drug hypersensitivity [Recovered/Resolved]
  - Nausea [Unknown]
  - Akathisia [Recovered/Resolved]
  - Pruritus [Unknown]
  - Vision blurred [Unknown]
  - Malaise [Unknown]

NARRATIVE: CASE EVENT DATE: 20210101
